FAERS Safety Report 7362441-2 (Version None)
Quarter: 2011Q1

REPORT INFORMATION
  Report Type: 
  Country: None (occurrence: None)
  Receive Date: 20110318
  Receipt Date: 20110311
  Transmission Date: 20110831
  Serious: Yes (Other)
  Sender: FDA-Public Use
  Company Number: US-US-EMD SERONO, INC.-7047204

PATIENT
  Sex: Female

DRUGS (2)
  1. OXYCODONE HCL [Concomitant]
  2. REBIF [Suspect]
     Indication: PRODUCT USED FOR UNKNOWN INDICATION
     Route: 058
     Dates: start: 20070310

REACTIONS (2)
  - INTERVERTEBRAL DISC PROTRUSION [None]
  - LIVER FUNCTION TEST ABNORMAL [None]
